FAERS Safety Report 23205801 (Version 1)
Quarter: 2023Q4

REPORT INFORMATION
  Report Type: Spontaneous
  Country: US (occurrence: US)
  Receive Date: 20231120
  Receipt Date: 20231120
  Transmission Date: 20240110
  Serious: No
  Sender: FDA-Public Use
  Company Number: US-SA-SAC20231114000983

PATIENT
  Sex: Female

DRUGS (20)
  1. DUPIXENT [Suspect]
     Active Substance: DUPILUMAB
     Indication: Dermatitis atopic
     Dosage: 300MG,QOW
     Route: 058
     Dates: start: 20230420
  2. ACTEMRA [Concomitant]
     Active Substance: TOCILIZUMAB
  3. ASPIRIN [Concomitant]
     Active Substance: ASPIRIN
  4. AZITHROMYCIN [Concomitant]
     Active Substance: AZITHROMYCIN
  5. CARDIZEM LA [Concomitant]
     Active Substance: DILTIAZEM HYDROCHLORIDE
  6. CLENPIQ [Concomitant]
     Active Substance: ANHYDROUS CITRIC ACID\MAGNESIUM OXIDE\SODIUM PICOSULFATE
  7. CLOBETASOL [Concomitant]
     Active Substance: CLOBETASOL
  8. EFFEXOR [Concomitant]
     Active Substance: VENLAFAXINE HYDROCHLORIDE
  9. FAMOTIDINE [Concomitant]
     Active Substance: FAMOTIDINE
  10. FOLIC ACID [Concomitant]
     Active Substance: FOLIC ACID
  11. LETROZOLE [Concomitant]
     Active Substance: LETROZOLE
  12. METHOTREXATE [Concomitant]
     Active Substance: METHOTREXATE
  13. OMEPRAZOLE [Concomitant]
     Active Substance: OMEPRAZOLE
  14. OXYBUTYNIN [Concomitant]
     Active Substance: OXYBUTYNIN
  15. PREGABALIN [Concomitant]
     Active Substance: PREGABALIN
  16. TIZANIDINE [Concomitant]
     Active Substance: TIZANIDINE
  17. SULFASALAZINE DELAYED-RELEASE [Concomitant]
     Active Substance: SULFASALAZINE
  18. BETAMETHASONE DIPROPIONATE [Concomitant]
     Active Substance: BETAMETHASONE DIPROPIONATE
  19. AMITRIPTYLINE [Concomitant]
     Active Substance: AMITRIPTYLINE
  20. AMITRIPTYLINE [Concomitant]
     Active Substance: AMITRIPTYLINE

REACTIONS (1)
  - Depression [Unknown]
